FAERS Safety Report 24109591 (Version 1)
Quarter: 2024Q3

REPORT INFORMATION
  Report Type: Spontaneous
  Country: US (occurrence: None)
  Receive Date: 20240717
  Receipt Date: 20240717
  Transmission Date: 20241017
  Serious: Yes (Hospitalization)
  Sender: Public
  Company Number: None

PATIENT
  Age: 5 Year
  Sex: Female
  Weight: 16.8 kg

DRUGS (3)
  1. CYCLOPHOSPHAMIDE [Suspect]
     Active Substance: CYCLOPHOSPHAMIDE
     Dates: end: 20240416
  2. CELLCEPT [Suspect]
     Active Substance: MYCOPHENOLATE MOFETIL
     Dates: end: 20240518
  3. TACROLIMUS [Suspect]
     Active Substance: TACROLIMUS
     Dates: end: 20240624

REACTIONS (7)
  - Anaemia [None]
  - Thrombocytopenia [None]
  - Proteinuria [None]
  - Hypertension [None]
  - Diarrhoea haemorrhagic [None]
  - Pericardial effusion [None]
  - Pleural effusion [None]

NARRATIVE: CASE EVENT DATE: 20240625
